FAERS Safety Report 5810851-4 (Version None)
Quarter: 2008Q3

REPORT INFORMATION
  Report Type: 
  Country: None (occurrence: None)
  Receive Date: 20080710
  Receipt Date: 20080626
  Transmission Date: 20090109
  Serious: Yes (Death, Congenital Anomaly)
  Sender: FDA-Public Use
  Company Number: 2008AP000143

PATIENT
  Sex: Female

DRUGS (1)
  1. PAROXETINE HYDROCHLORIDE [Suspect]
     Dosage: TRPL
     Route: 064

REACTIONS (8)
  - HYPERKALAEMIA [None]
  - HYPOPLASTIC LEFT HEART SYNDROME [None]
  - MATERNAL DRUGS AFFECTING FOETUS [None]
  - METABOLIC ACIDOSIS [None]
  - NEONATAL DISORDER [None]
  - PULMONARY HAEMORRHAGE [None]
  - SICK SINUS SYNDROME [None]
  - VENTRICULAR DYSFUNCTION [None]
